FAERS Safety Report 9377978 (Version 1)
Quarter: 2013Q3

REPORT INFORMATION
  Report Type: Spontaneous
  Country: US (occurrence: US)
  Receive Date: 20130701
  Receipt Date: 20130701
  Transmission Date: 20140515
  Serious: Yes (Other)
  Sender: FDA-Public Use
  Company Number: US-ELI_LILLY_AND_COMPANY-US201306005579

PATIENT
  Age: 13 Year
  Sex: Male

DRUGS (1)
  1. STRATTERA [Suspect]
     Indication: ATTENTION DEFICIT/HYPERACTIVITY DISORDER
     Dosage: 40 MG, QD
     Dates: start: 201306

REACTIONS (6)
  - Arrhythmia [Unknown]
  - Chest pain [Unknown]
  - Nausea [Unknown]
  - Hallucination [Unknown]
  - Dizziness [Unknown]
  - Heart rate increased [Unknown]
